FAERS Safety Report 4786096-6 (Version None)
Quarter: 2005Q3

REPORT INFORMATION
  Report Type: 
  Country: None (occurrence: None)
  Receive Date: 20050930
  Receipt Date: 20050916
  Transmission Date: 20060218
  Serious: Yes (Hospitalization)
  Sender: FDA-Public Use
  Company Number: SUS1-2005-00698

PATIENT
  Age: 19 Year
  Sex: Female

DRUGS (1)
  1. PENTASA [Suspect]
     Indication: COLITIS ULCERATIVE
     Dosage: 2250 MG DAILY, ORAL
     Route: 048

REACTIONS (1)
  - EOSINOPHILIC PNEUMONIA [None]
